FAERS Safety Report 8997139 (Version 1)
Quarter: 2013Q1

REPORT INFORMATION
  Report Type: Spontaneous
  Country: US (occurrence: None)
  Receive Date: 20130102
  Receipt Date: 20130102
  Transmission Date: 20140127
  Serious: No
  Sender: FDA-Public Use
  Company Number: None

PATIENT
  Age: 60 Year
  Sex: Female

DRUGS (1)
  1. FORTEO [Suspect]
     Indication: OSTEOPOROSIS
     Route: 058
     Dates: start: 20121015, end: 20121219

REACTIONS (10)
  - Nausea [None]
  - Influenza like illness [None]
  - Abdominal pain upper [None]
  - Fatigue [None]
  - Constipation [None]
  - Tremor [None]
  - Hyperhidrosis [None]
  - Headache [None]
  - Chest discomfort [None]
  - Heart rate increased [None]
